FAERS Safety Report 15034989 (Version 5)
Quarter: 2018Q4

REPORT INFORMATION
  Report Type: Report from Study
  Country: None (occurrence: GB)
  Receive Date: 20180620
  Receipt Date: 20181029
  Transmission Date: 20190204
  Serious: Yes (Hospitalization)
  Sender: FDA-Public Use
  Company Number: GB-ABBVIE-18S-167-2394336-00

PATIENT
  Age: 71 Year
  Sex: Male
  Weight: 79.4 kg

DRUGS (9)
  1. FEXOFENADINE [Concomitant]
     Active Substance: FEXOFENADINE\FEXOFENADINE HYDROCHLORIDE
     Indication: PRURITUS
     Dosage: 1 DF, QD
     Dates: start: 201807
  2. FERROUS SULFATE. [Concomitant]
     Active Substance: FERROUS SULFATE
     Indication: IRON DEFICIENCY
     Dosage: 1 DF, QD
  3. CO-DYDRAMOL [Concomitant]
     Active Substance: ACETAMINOPHEN\DIHYDROCODEINE
     Indication: PAIN
     Dosage: 1-2QID AS REQUIRED MAX 8/24 HOURS
  4. PANCREATIN [Suspect]
     Active Substance: PANCRELIPASE
     Dosage: 3 DF, QD
     Route: 048
  5. OMEPRAZOLE. [Concomitant]
     Active Substance: OMEPRAZOLE
     Indication: PRODUCT USED FOR UNKNOWN INDICATION
     Dosage: ONE OR TWO BE TAKEN EACH DAY, QD
  6. PARACETAMOL [Concomitant]
     Active Substance: ACETAMINOPHEN
     Indication: PRODUCT USED FOR UNKNOWN INDICATION
     Dosage: 2 DF, QD
  7. SILDENAFIL. [Concomitant]
     Active Substance: SILDENAFIL
     Indication: PRODUCT USED FOR UNKNOWN INDICATION
     Dosage: TO BE TAKEN HALF AN HOUR BEFORE ACTIVITY
  8. SIMVASTATIN. [Concomitant]
     Active Substance: SIMVASTATIN
     Indication: BLOOD CHOLESTEROL ABNORMAL
     Dosage: UNK
  9. PANCREATIN [Suspect]
     Active Substance: PANCRELIPASE
     Indication: PANCREATICODUODENECTOMY
     Dosage: DOSE: 25000, FORM:  CAPSULE
     Route: 048
     Dates: start: 20180509

REACTIONS (3)
  - Pyrexia [Recovered/Resolved]
  - Chills [Unknown]
  - Weight decreased [Recovered/Resolved]

NARRATIVE: CASE EVENT DATE: 20180612
